FAERS Safety Report 17339803 (Version 1)
Quarter: 2020Q1

REPORT INFORMATION
  Report Type: Spontaneous
  Country: US (occurrence: US)
  Receive Date: 20200129
  Receipt Date: 20200129
  Transmission Date: 20200409
  Serious: Yes (Other)
  Sender: FDA-Public Use
  Company Number: US-009507513-2001USA007356

PATIENT
  Age: 48 Year
  Sex: Female

DRUGS (14)
  1. XYREM [Suspect]
     Active Substance: SODIUM OXYBATE
     Indication: CATAPLEXY
     Dosage: 4 G, 2X/DAY (BID)
     Route: 048
  2. SYNTHROID [Concomitant]
     Active Substance: LEVOTHYROXINE SODIUM
     Indication: PRODUCT USED FOR UNKNOWN INDICATION
     Dosage: UNK
  3. XYREM [Suspect]
     Active Substance: SODIUM OXYBATE
     Dosage: 3 G, 2X/DAY (BID)
     Dates: start: 2016, end: 2016
  4. LAMOTRIGINE. [Concomitant]
     Active Substance: LAMOTRIGINE
     Indication: PRODUCT USED FOR UNKNOWN INDICATION
     Dosage: UNK
  5. CHOLECALCIFEROL [Concomitant]
     Active Substance: CHOLECALCIFEROL
     Indication: PRODUCT USED FOR UNKNOWN INDICATION
     Dosage: UNK
  6. ESTRADIOL. [Concomitant]
     Active Substance: ESTRADIOL
     Indication: PRODUCT USED FOR UNKNOWN INDICATION
     Dosage: UNK
  7. MODAFINIL. [Concomitant]
     Active Substance: MODAFINIL
     Indication: PRODUCT USED FOR UNKNOWN INDICATION
     Dosage: UNK
  8. XANAX [Concomitant]
     Active Substance: ALPRAZOLAM
     Indication: PRODUCT USED FOR UNKNOWN INDICATION
     Dosage: UNK
  9. XYREM [Suspect]
     Active Substance: SODIUM OXYBATE
     Dosage: 2.25 GRAM, BID
     Route: 048
     Dates: start: 201608, end: 2016
  10. CYANOCOBALAMIN. [Concomitant]
     Active Substance: CYANOCOBALAMIN
     Indication: PRODUCT USED FOR UNKNOWN INDICATION
     Dosage: UNK
  11. REMERON [Suspect]
     Active Substance: MIRTAZAPINE
     Indication: PRODUCT USED FOR UNKNOWN INDICATION
     Dosage: TWO DOSES
  12. XYREM [Suspect]
     Active Substance: SODIUM OXYBATE
     Indication: NARCOLEPSY
     Dosage: 3.5 G, 2X/DAY (BID)
     Dates: start: 201610, end: 201610
  13. XYREM [Suspect]
     Active Substance: SODIUM OXYBATE
     Dosage: UNK (TOOK MORE THAN PRESCRIBED, 3.5 GRAMS FOR BOTH DOSES)
     Dates: start: 201610
  14. MELATONIN [Concomitant]
     Active Substance: MELATONIN
     Indication: PRODUCT USED FOR UNKNOWN INDICATION
     Dosage: 10 MG
     Dates: start: 20161010

REACTIONS (16)
  - Crying [Unknown]
  - Drug ineffective [Unknown]
  - Intentional product use issue [Unknown]
  - Fall [Recovered/Resolved]
  - Choking sensation [Unknown]
  - Vulvovaginal discomfort [Unknown]
  - Memory impairment [Unknown]
  - Contusion [Unknown]
  - Feeling abnormal [Unknown]
  - Nasopharyngitis [Not Recovered/Not Resolved]
  - Sluggishness [Unknown]
  - Limb discomfort [Not Recovered/Not Resolved]
  - Insomnia [Unknown]
  - Tooth disorder [Unknown]
  - Hypoaesthesia oral [Unknown]
  - Anger [Unknown]

NARRATIVE: CASE EVENT DATE: 2016
